FAERS Safety Report 7928098-4 (Version None)
Quarter: 2011Q4

REPORT INFORMATION
  Report Type: 
  Country: None (occurrence: None)
  Receive Date: 20111118
  Receipt Date: 20111110
  Transmission Date: 20120403
  Serious: Yes (Other)
  Sender: FDA-Public Use
  Company Number: JP-GLAXOSMITHKLINE-B0762196A

PATIENT
  Sex: Female

DRUGS (12)
  1. CRESTOR [Concomitant]
     Route: 048
  2. LENDORMIN [Concomitant]
     Route: 048
  3. CEFCAPENE PIVOXIL HYDROCHLORIDE [Concomitant]
     Route: 048
  4. LAMICTAL [Suspect]
     Dosage: 50MG PER DAY
     Route: 048
     Dates: start: 20110831, end: 20110914
  5. HALCION [Concomitant]
     Route: 048
  6. OLMESARTAN MEDOXOMIL [Concomitant]
     Route: 048
  7. MEILAX [Concomitant]
     Route: 048
  8. AMITRIPTYLINE HCL [Concomitant]
     Route: 048
  9. DEPAS [Concomitant]
     Route: 048
  10. LAMICTAL [Suspect]
     Indication: BIPOLAR DISORDER
     Dosage: 25MG PER DAY
     Route: 048
     Dates: start: 20110817, end: 20110830
  11. LITHIUM CARBONATE [Concomitant]
     Route: 048
  12. NORVASC [Concomitant]
     Route: 048

REACTIONS (3)
  - OROPHARYNGEAL PAIN [None]
  - COLLAGEN DISORDER [None]
  - STEVENS-JOHNSON SYNDROME [None]
